FAERS Safety Report 4318482-2 (Version None)
Quarter: 2004Q1

REPORT INFORMATION
  Report Type: 
  Country: None (occurrence: None)
  Receive Date: 20040316
  Receipt Date: 20040316
  Transmission Date: 20041129
  Serious: Yes (Other)
  Sender: FDA-Public Use
  Company Number: None

PATIENT
  Age: 64 Year
  Sex: Male
  Weight: 113.3993 kg

DRUGS (1)
  1. MIDAZOLAM HYDROCHLORIDE [Suspect]

REACTIONS (3)
  - DEPRESSED LEVEL OF CONSCIOUSNESS [None]
  - OXYGEN SATURATION DECREASED [None]
  - SEDATION [None]
